FAERS Safety Report 24284519 (Version 3)
Quarter: 2024Q4

REPORT INFORMATION
  Report Type: Spontaneous
  Country: US (occurrence: US)
  Receive Date: 20240905
  Receipt Date: 20241129
  Transmission Date: 20250115
  Serious: No
  Sender: GLAXOSMITHKLINE
  Company Number: US-GSK-US2024AMR107691

PATIENT
  Sex: Male

DRUGS (1)
  1. ALBUTEROL SULFATE [Suspect]
     Active Substance: ALBUTEROL SULFATE
     Indication: Product used for unknown indication
     Dosage: 90 UG, 18G/200 METERED

REACTIONS (4)
  - Exposure via skin contact [Unknown]
  - Product dose omission issue [Unknown]
  - Accidental exposure to product [Unknown]
  - Product complaint [Unknown]
